FAERS Safety Report 4619477-1 (Version None)
Quarter: 2005Q1

REPORT INFORMATION
  Report Type: 
  Country: None (occurrence: None)
  Receive Date: 20050325
  Receipt Date: 20050314
  Transmission Date: 20050727
  Serious: Yes (Death)
  Sender: FDA-Public Use
  Company Number: JP-JNJFOC-20050304267

PATIENT
  Age: 75 Year
  Sex: Male

DRUGS (5)
  1. RISPERDAL [Suspect]
     Route: 049
     Dates: start: 20050305
  2. RISPERDAL [Suspect]
     Indication: PERSECUTORY DELUSION
     Route: 049
     Dates: start: 20050305
  3. ASPIRIN DIALUMINATE [Concomitant]
     Route: 049
     Dates: start: 20050305, end: 20050306
  4. ASPIRIN DIALUMINATE [Concomitant]
     Route: 049
     Dates: start: 20050305, end: 20050306
  5. ASPIRIN DIALUMINATE [Concomitant]
     Indication: CEREBROVASCULAR ACCIDENT PROPHYLAXIS
     Route: 049
     Dates: start: 20050305, end: 20050306

REACTIONS (5)
  - ARRHYTHMIA [None]
  - DEATH [None]
  - HAEMATEMESIS [None]
  - NEUROLEPTIC MALIGNANT SYNDROME [None]
  - RENAL FAILURE ACUTE [None]
